FAERS Safety Report 4720905-1 (Version None)
Quarter: 2005Q3

REPORT INFORMATION
  Report Type: 
  Country: None (occurrence: None)
  Receive Date: 20050720
  Receipt Date: 20050713
  Transmission Date: 20060218
  Serious: Yes (Hospitalization, Other)
  Sender: FDA-Public Use
  Company Number: 200512172GDS

PATIENT
  Age: 61 Year
  Sex: Female

DRUGS (20)
  1. ASPIRIN [Suspect]
     Indication: RHEUMATOID ARTHRITIS
     Dosage: 100 MG, QD; ORAL
     Route: 048
     Dates: start: 20030820
  2. REMICADE [Suspect]
     Indication: RHEUMATOID ARTHRITIS
     Dosage: 3MG/KG TOTAL DAILY, INTRAVEN (SEE IMAGE)
     Route: 042
     Dates: start: 20040706
  3. REMICADE [Suspect]
     Indication: RHEUMATOID ARTHRITIS
     Dosage: 3MG/KG TOTAL DAILY, INTRAVEN (SEE IMAGE)
     Route: 042
     Dates: start: 20040720
  4. REMICADE [Suspect]
     Indication: RHEUMATOID ARTHRITIS
     Dosage: 3MG/KG TOTAL DAILY, INTRAVEN (SEE IMAGE)
     Route: 042
     Dates: start: 20040819
  5. REMICADE [Suspect]
     Indication: RHEUMATOID ARTHRITIS
     Dosage: 3MG/KG TOTAL DAILY, INTRAVEN (SEE IMAGE)
     Route: 042
     Dates: start: 20041016
  6. REMICADE [Suspect]
     Indication: RHEUMATOID ARTHRITIS
     Dosage: 3MG/KG TOTAL DAILY, INTRAVEN (SEE IMAGE)
     Route: 042
     Dates: start: 20041221
  7. METHOTREXATE [Suspect]
     Indication: RHEUMATOID ARTHRITIS
     Dosage: 4 MG, OW; ORAL ; 6 MG , OW; ORAL (SEE IMAGE)
     Route: 048
     Dates: start: 20020806
  8. METHOTREXATE [Suspect]
     Indication: RHEUMATOID ARTHRITIS
     Dosage: 4 MG, OW; ORAL ; 6 MG , OW; ORAL (SEE IMAGE)
     Route: 048
     Dates: start: 20031209
  9. METHOTREXATE [Suspect]
     Indication: RHEUMATOID ARTHRITIS
     Dosage: 4 MG, OW; ORAL ; 6 MG , OW; ORAL (SEE IMAGE)
     Route: 048
     Dates: start: 20040909
  10. METHOTREXATE [Suspect]
     Indication: RHEUMATOID ARTHRITIS
     Dosage: 4 MG, OW; ORAL ; 6 MG , OW; ORAL (SEE IMAGE)
     Route: 048
     Dates: start: 20050304
  11. PREDNISOLONE [Suspect]
     Indication: RHEUMATOID ARTHRITIS
     Dosage: 6 MG, TOTAL DAILY; ORAL
     Route: 048
     Dates: start: 20030415
  12. LIMETHASON [Suspect]
     Indication: RHEUMATOID ARTHRITIS
     Dosage: 4 MG TOTAL DAILY; INTRAVENOUS
     Route: 042
     Dates: start: 20020225
  13. SHIOSOL (SODIUM AUROTHIOMALATE) [Suspect]
     Indication: RHEUMATOID ARTHRITIS
     Dosage: 10 MG TOTAL DAILY; INTRAVENOUS
     Route: 042
     Dates: start: 20020111
  14. LOXONIN (LOXOPROFEN SODIUM) [Suspect]
     Indication: RHEUMATOID ARTHRITIS
     Dosage: 120 MG, TOTAL DAILY; ORAL
     Route: 048
     Dates: start: 20020724
  15. RENACORT [Concomitant]
  16. THIAZOLE [Concomitant]
  17. AZULFIDINE [Concomitant]
  18. VOLTAREN [Concomitant]
  19. LEUCOVORIN [Concomitant]
  20. TANATRIL [Concomitant]

REACTIONS (12)
  - ANOREXIA [None]
  - CHILLS [None]
  - FALL [None]
  - FATIGUE [None]
  - HEADACHE [None]
  - HUMERUS FRACTURE [None]
  - LIMB INJURY [None]
  - PALLOR [None]
  - PRODUCTIVE COUGH [None]
  - STAPHYLOCOCCAL SEPSIS [None]
  - UPPER RESPIRATORY TRACT INFLAMMATION [None]
  - WRIST FRACTURE [None]
